FAERS Safety Report 7104970-2 (Version None)
Quarter: 2010Q4

REPORT INFORMATION
  Report Type: 
  Country: None (occurrence: None)
  Receive Date: 20101110
  Receipt Date: 20101101
  Transmission Date: 20110411
  Serious: Yes (Hospitalization)
  Sender: FDA-Public Use
  Company Number: US-004042

PATIENT
  Sex: Male

DRUGS (2)
  1. DEGARELIX 240 MG [Suspect]
     Indication: PRODUCT USED FOR UNKNOWN INDICATION
     Dates: start: 20101027
  2. CASODEX [Concomitant]

REACTIONS (4)
  - ANAEMIA [None]
  - BACK PAIN [None]
  - FATIGUE [None]
  - RENAL DISORDER [None]
